FAERS Safety Report 11645144 (Version 1)
Quarter: 2015Q4

REPORT INFORMATION
  Report Type: Spontaneous
  Country: FR (occurrence: FR)
  Receive Date: 20151020
  Receipt Date: 20151020
  Transmission Date: 20160304
  Serious: Yes (Hospitalization)
  Sender: FDA-Public Use
  Company Number: FR-TEVA-600368ISR

PATIENT
  Age: 63 Year
  Sex: Male

DRUGS (7)
  1. POLARAMINE [Suspect]
     Active Substance: DEXCHLORPHENIRAMINE MALEATE
     Indication: PREMEDICATION
     Dosage: 1 DOSAGE FORMS DAILY;
     Route: 040
     Dates: start: 20150811, end: 20150811
  2. METHYLPREDNISOLONE MERCK [Suspect]
     Active Substance: METHYLPREDNISOLONE
     Indication: PREMEDICATION
     Dosage: 20 MILLIGRAM DAILY;
     Route: 040
     Dates: start: 20150811, end: 20150811
  3. VELBE 10 MG [Suspect]
     Active Substance: VINBLASTINE SULFATE
     Indication: HODGKIN^S DISEASE
     Dosage: 12 MILLIGRAM DAILY;
     Route: 041
     Dates: start: 20150811, end: 20150811
  4. DOXORUBICINE TEVA 200 MG/100 ML [Suspect]
     Active Substance: DOXORUBICIN
     Indication: HODGKIN^S DISEASE
     Dosage: 1 DOSAGE FORMS DAILY;
     Route: 041
     Dates: start: 20150811, end: 20150811
  5. BLEOMYCINE BELLON 15MG [Suspect]
     Active Substance: BLEOMYCIN SULFATE
     Indication: HODGKIN^S DISEASE
     Dosage: 20 MILLIGRAM DAILY;
     Route: 041
     Dates: start: 20150811, end: 20150811
  6. ZOPHREN 2 MG/ML [Concomitant]
     Active Substance: ONDANSETRON
     Indication: PREMEDICATION
  7. DACARBAZINE MEDAC [Suspect]
     Active Substance: DACARBAZINE
     Indication: HODGKIN^S DISEASE
     Dosage: 740 MILLIGRAM DAILY;
     Dates: start: 20150811, end: 20150811

REACTIONS (8)
  - Livedo reticularis [Recovered/Resolved]
  - Dyspnoea [Recovered/Resolved]
  - Hypotension [Recovered/Resolved]
  - Pyrexia [Recovered/Resolved]
  - Hyperhidrosis [Recovered/Resolved]
  - Hypoxia [Recovered/Resolved]
  - Chills [Recovered/Resolved]
  - Tachycardia [Recovered/Resolved]

NARRATIVE: CASE EVENT DATE: 20150811
